FAERS Safety Report 16694604 (Version 1)
Quarter: 2019Q3

REPORT INFORMATION
  Report Type: Spontaneous
  Country: FR (occurrence: FR)
  Receive Date: 20190812
  Receipt Date: 20190812
  Transmission Date: 20191004
  Serious: Yes (Hospitalization)
  Sender: FDA-Public Use
  Company Number: FR-MYLANLABS-2019M1074647

PATIENT
  Age: 74 Year
  Sex: Male
  Weight: 85 kg

DRUGS (10)
  1. ESOMEPRAZOLE. [Suspect]
     Active Substance: ESOMEPRAZOLE MAGNESIUM
     Indication: PROPHYLAXIS AGAINST GASTROINTESTINAL ULCER
     Dosage: 40 MILLIGRAM, BID
     Route: 048
     Dates: start: 201808
  2. BISOCE 3,75 MG, COMPRIM? PELLICUL? S?CABLE [Suspect]
     Active Substance: BISOPROLOL FUMARATE
     Indication: HYPERTENSION
     Dosage: 1-0-0
     Route: 048
     Dates: start: 201808
  3. RAMIPRIL. [Suspect]
     Active Substance: RAMIPRIL
     Indication: HYPERTENSION
     Dosage: 1-0-0
     Route: 048
     Dates: start: 201701
  4. VOGALENE [Suspect]
     Active Substance: METOPIMAZINE
     Indication: NAUSEA
     Dosage: 22.5 MILLIGRAM, TID
     Route: 048
     Dates: start: 20190129, end: 20190202
  5. COMPLEMENT (NAPROXEN SODIUM) [Suspect]
     Active Substance: NAPROXEN SODIUM
     Indication: SLEEP DISORDER
     Dosage: 0-0-1
     Route: 048
  6. ALLOPURINOL MYLAN 100 MG, COMPRIM? [Suspect]
     Active Substance: ALLOPURINOL
     Indication: HYPERURICAEMIA
     Dosage: 2-0-0
     Route: 048
     Dates: start: 201701
  7. KARDEGIC [Suspect]
     Active Substance: ASPIRIN DL-LYSINE
     Indication: THROMBOSIS PROPHYLAXIS
     Dosage: 1-0-0
     Route: 048
     Dates: start: 201704
  8. METEOXANE                          /08328901/ [Suspect]
     Active Substance: DIMETHICONE\PHLOROGLUCINOL
     Indication: GASTROINTESTINAL DISORDER
     Dosage: 3 DOSAGE FORM, TID
     Route: 048
     Dates: start: 20190129, end: 20190202
  9. ATORVASTATINE EG [Suspect]
     Active Substance: ATORVASTATIN CALCIUM
     Indication: HYPERCHOLESTEROLAEMIA
     Dosage: 0-0-1
     Route: 048
     Dates: start: 201701
  10. PERMIXON [Suspect]
     Active Substance: HERBALS\SAW PALMETTO
     Indication: BENIGN PROSTATIC HYPERPLASIA
     Dosage: 0-0-2
     Route: 048
     Dates: start: 201808

REACTIONS (1)
  - Pancreatitis acute [Recovering/Resolving]

NARRATIVE: CASE EVENT DATE: 20190203
